FAERS Safety Report 7351591 (Version 9)
Quarter: 2017Q2

REPORT INFORMATION
  Report Type: Report from Study
  Country: JP (occurrence: JP)
  Receive Date: 20100412
  Receipt Date: 20170623
  Transmission Date: 20170830
  Serious: Yes (Hospitalization, Other)
  Sender: FDA-Public Use
  Company Number: PHHY2009JP52590

PATIENT
  Age: 41 Year
  Sex: Female
  Weight: 61 kg

DRUGS (49)
  1. TEGRETOL [Suspect]
     Active Substance: CARBAMAZEPINE
     Indication: EPILEPSY
     Dosage: 200 MG, UNK
     Route: 048
     Dates: start: 20061013, end: 20170125
  2. PROGRAF [Interacting]
     Active Substance: TACROLIMUS\TACROLIMUS ANHYDROUS
     Dosage: 3 MG, QD
     Route: 048
     Dates: start: 20090219, end: 20090312
  3. CERTICAN [Suspect]
     Active Substance: EVEROLIMUS
     Dosage: 2.5 MG, QD
     Route: 048
     Dates: start: 20080728
  4. CERTICAN [Suspect]
     Active Substance: EVEROLIMUS
     Dosage: 4 MG, QD
     Route: 048
  5. CERTICAN [Suspect]
     Active Substance: EVEROLIMUS
     Dosage: 3.5 MG, QD
     Route: 048
     Dates: start: 20090514, end: 20091001
  6. PROGRAF [Interacting]
     Active Substance: TACROLIMUS\TACROLIMUS ANHYDROUS
     Indication: HEART TRANSPLANT
     Dosage: 5.2 MG, QD
     Route: 048
     Dates: end: 20080921
  7. PROGRAF [Interacting]
     Active Substance: TACROLIMUS\TACROLIMUS ANHYDROUS
     Dosage: 3 MG, QD
     Route: 048
     Dates: start: 20090317, end: 20090507
  8. CELLCEPT [Concomitant]
     Active Substance: MYCOPHENOLATE MOFETIL\MYCOPHENOLATE MOFETIL HYDROCHLORIDE
     Indication: HEART TRANSPLANT
     Dosage: 1750 MG, UNK
     Route: 048
     Dates: end: 20080722
  9. EMPECID [Concomitant]
     Active Substance: CLOTRIMAZOLE
     Dosage: 40 MG, QD
     Route: 061
     Dates: start: 20081209, end: 20081213
  10. AMPICILLIN SODIUM. [Concomitant]
     Active Substance: AMPICILLIN SODIUM
     Indication: PRODUCT USED FOR UNKNOWN INDICATION
     Dosage: UNK
     Route: 065
  11. CERTICAN [Suspect]
     Active Substance: EVEROLIMUS
     Indication: HEART TRANSPLANT
     Dosage: 1.5 MG, QD
     Route: 048
     Dates: start: 20080722, end: 20080727
  12. CERTICAN [Suspect]
     Active Substance: EVEROLIMUS
     Dosage: 5 MG, QD
     Route: 048
     Dates: start: 20081129, end: 20081211
  13. CERTICAN [Suspect]
     Active Substance: EVEROLIMUS
     Dosage: 4 MG, QD
     Route: 048
     Dates: start: 20110304
  14. PREDONINE [Concomitant]
     Active Substance: PREDNISOLONE
     Dosage: 8 MG, UNK
     Route: 048
     Dates: start: 20090517, end: 20110505
  15. CERTICAN [Suspect]
     Active Substance: EVEROLIMUS
     Dosage: 3.25 MG, QD
     Route: 048
     Dates: start: 20090305, end: 20090305
  16. CERTICAN [Suspect]
     Active Substance: EVEROLIMUS
     Dosage: 3 MG, QD
     Route: 048
     Dates: start: 20090306, end: 20090326
  17. CERTICAN [Suspect]
     Active Substance: EVEROLIMUS
     Dosage: 4 MG, QD
     Route: 048
     Dates: start: 20091020, end: 20091105
  18. PROGRAF [Interacting]
     Active Substance: TACROLIMUS\TACROLIMUS ANHYDROUS
     Dosage: 4.5 MG, QD
     Route: 048
     Dates: start: 20081128, end: 20081128
  19. CELLCEPT [Concomitant]
     Active Substance: MYCOPHENOLATE MOFETIL\MYCOPHENOLATE MOFETIL HYDROCHLORIDE
     Dosage: 1000 MG, UNK
     Route: 048
     Dates: start: 20110506
  20. PREDONINE [Concomitant]
     Active Substance: PREDNISOLONE
     Indication: HEART TRANSPLANT
     Dosage: 15 MG, UNK
     Route: 048
     Dates: start: 20080728, end: 20080813
  21. GAMMA GLOBULIN [Concomitant]
     Active Substance: IMMUNE GLOBULIN NOS
     Indication: PRODUCT USED FOR UNKNOWN INDICATION
     Dosage: UNK
     Route: 065
  22. CERTICAN [Suspect]
     Active Substance: EVEROLIMUS
     Dosage: 4.5 MG, QD
     Route: 048
     Dates: start: 20081213, end: 20090218
  23. PROGRAF [Interacting]
     Active Substance: TACROLIMUS\TACROLIMUS ANHYDROUS
     Dosage: 3.5 MG, QD
     Route: 048
     Dates: start: 20090313, end: 20090316
  24. CELLCEPT [Concomitant]
     Active Substance: MYCOPHENOLATE MOFETIL\MYCOPHENOLATE MOFETIL HYDROCHLORIDE
     Dosage: 500 MG, UNK
     Route: 048
     Dates: start: 20080814, end: 20081126
  25. PREDONINE [Concomitant]
     Active Substance: PREDNISOLONE
     Dosage: 7.5 MG, UNK
     Route: 048
     Dates: start: 20080822, end: 20080828
  26. PREDONINE [Concomitant]
     Active Substance: PREDNISOLONE
     Dosage: 2.5 MG, UNK
     Route: 048
     Dates: start: 20080905, end: 20080911
  27. PRAVASTATIN. [Concomitant]
     Active Substance: PRAVASTATIN
     Indication: PROPHYLAXIS
     Dosage: 20 MG, UNK
     Route: 048
     Dates: start: 20050105
  28. CERTICAN [Suspect]
     Active Substance: EVEROLIMUS
     Dosage: 5.25 MG, QD
     Route: 048
     Dates: start: 20081127, end: 20081128
  29. CERTICAN [Suspect]
     Active Substance: EVEROLIMUS
     Dosage: 3.5 MG, QD
     Route: 048
     Dates: start: 20090219, end: 20090304
  30. CERTICAN [Suspect]
     Active Substance: EVEROLIMUS
     Dosage: 3.25 MG, QD
     Route: 048
     Dates: start: 20090327, end: 20090513
  31. CERTICAN [Suspect]
     Active Substance: EVEROLIMUS
     Dosage: 4.25 MG, QD
     Route: 048
     Dates: start: 20091106, end: 20091113
  32. PREDONINE [Concomitant]
     Active Substance: PREDNISOLONE
     Dosage: 10 MG, UNK
     Route: 048
     Dates: start: 20080814, end: 20080821
  33. PREDONINE [Concomitant]
     Active Substance: PREDNISOLONE
     Dosage: 5 MG, UNK
     Route: 048
     Dates: start: 20110506
  34. THYRADIN-S [Concomitant]
     Active Substance: LEVOTHYROXINE
     Indication: HYPOTHYROIDISM
     Dosage: 75 MG, UNK
     Route: 048
     Dates: start: 20061207, end: 20170125
  35. EMPECID [Concomitant]
     Active Substance: CLOTRIMAZOLE
     Indication: INFECTION PROPHYLAXIS
     Dosage: UNK
     Route: 061
     Dates: start: 20080821, end: 20080910
  36. PROGRAF [Interacting]
     Active Substance: TACROLIMUS\TACROLIMUS ANHYDROUS
     Dosage: 4 MG, QD
     Route: 048
     Dates: start: 20081129, end: 20090218
  37. PREDONINE [Concomitant]
     Active Substance: PREDNISOLONE
     Dosage: 5 MG, UNK
     Route: 048
     Dates: start: 20080829, end: 20080904
  38. DEPAKENE [Concomitant]
     Active Substance: VALPROIC ACID
     Indication: EPILEPSY
     Dosage: 800 MG, UNK
     Route: 048
     Dates: start: 20050813, end: 20170125
  39. BLOPRESS [Concomitant]
     Active Substance: CANDESARTAN CILEXETIL
     Indication: PROPHYLAXIS
     Dosage: 4 MG, QD
     Route: 048
  40. MEROPEN [Concomitant]
     Active Substance: MEROPENEM
     Indication: GRANULOCYTOPENIA
     Dosage: 2 G, QD
     Route: 042
     Dates: start: 20081128, end: 20081128
  41. LIPITOR [Concomitant]
     Active Substance: ATORVASTATIN CALCIUM
     Indication: HYPERLIPIDAEMIA
     Dosage: 10 MG, UNK
     Route: 048
     Dates: start: 20110304
  42. AMLODINE [Concomitant]
     Active Substance: AMLODIPINE BESYLATE
     Indication: PROPHYLAXIS
     Dosage: 2.5 MG, UNK
     Route: 048
     Dates: start: 20110304
  43. SODIUM VALPROATE [Concomitant]
     Active Substance: VALPROATE SODIUM
     Indication: EPILEPSY
     Dosage: UNK
     Route: 065
  44. CERTICAN [Suspect]
     Active Substance: EVEROLIMUS
     Dosage: 5.25 MG, QD
     Route: 048
     Dates: end: 20080811
  45. CERTICAN [Suspect]
     Active Substance: EVEROLIMUS
     Dosage: 5.5 MG, QD
     Route: 048
     Dates: start: 20080812, end: 20081126
  46. CERTICAN [Suspect]
     Active Substance: EVEROLIMUS
     Dosage: 4.75 MG, QD
     Route: 048
     Dates: start: 20081212, end: 20081212
  47. CERTICAN [Suspect]
     Active Substance: EVEROLIMUS
     Dosage: 4.5 MG, QD
     Route: 048
     Dates: start: 20091002, end: 20091019
  48. PROGRAF [Interacting]
     Active Substance: TACROLIMUS\TACROLIMUS ANHYDROUS
     Dosage: 5 MG, QD
     Route: 048
     Dates: start: 20080922, end: 20081127
  49. MEROPEN [Concomitant]
     Active Substance: MEROPENEM
     Dosage: 3 G, QD
     Route: 042
     Dates: start: 20081129, end: 20081205

REACTIONS (19)
  - Abdominal pain [Recovering/Resolving]
  - Immunosuppressant drug level increased [Unknown]
  - Pneumonia bacterial [Recovering/Resolving]
  - Drug level decreased [Unknown]
  - Glucose tolerance impaired [Unknown]
  - Depression [Not Recovered/Not Resolved]
  - Syncope [Recovering/Resolving]
  - Gastrointestinal disorder [Unknown]
  - Pharyngitis [Recovered/Resolved]
  - Epstein-Barr virus antigen positive [Unknown]
  - Granulocytopenia [Recovering/Resolving]
  - Lymphadenopathy [Unknown]
  - Enteritis [Recovering/Resolving]
  - Immunosuppressant drug level decreased [Unknown]
  - Granulocytopenia [Recovered/Resolved]
  - Drug interaction [Unknown]
  - Anogenital warts [Unknown]
  - Coronary artery disease [Unknown]
  - Stomatitis [Recovering/Resolving]

NARRATIVE: CASE EVENT DATE: 20080804
